FAERS Safety Report 6276002-X (Version None)
Quarter: 2009Q3

REPORT INFORMATION
  Report Type: 
  Country: None (occurrence: None)
  Receive Date: 20090720
  Receipt Date: 20090715
  Transmission Date: 20100115
  Serious: Yes (Hospitalization)
  Sender: FDA-Public Use
  Company Number: SP02446

PATIENT
  Age: 66 Year
  Sex: Female
  Weight: 50.8029 kg

DRUGS (4)
  1. OSMOPREP [Suspect]
     Indication: BOWEL PREPARATION
     Dosage: (SPLIT DOSE REGIMEN), ORAL
     Route: 048
     Dates: start: 20090604, end: 20090605
  2. PREMPRO [Concomitant]
  3. ASPIRIN [Concomitant]
  4. TELMISARTAN [Concomitant]

REACTIONS (4)
  - KIDNEY FIBROSIS [None]
  - NEPHROPATHY [None]
  - NEPHROSCLEROSIS [None]
  - RENAL FAILURE [None]
